FAERS Safety Report 8811697 (Version 1)
Quarter: 2012Q4

REPORT INFORMATION
  Report Type: Spontaneous
  Country: JP (occurrence: None)
  Receive Date: 20120924
  Receipt Date: 20120924
  Transmission Date: 20130627
  Serious: Yes (Death, Other)
  Sender: FDA-Public Use
  Company Number: 2012PL000158

PATIENT
  Age: 71 Year
  Sex: Female

DRUGS (1)
  1. ALDESLEUKIN [Suspect]
     Route: 042

REACTIONS (4)
  - Lymphoedema [None]
  - Skin mass [None]
  - Haemorrhage [None]
  - Sepsis [None]
